FAERS Safety Report 5609184-0 (Version None)
Quarter: 2008Q1

REPORT INFORMATION
  Report Type: 
  Country: None (occurrence: None)
  Receive Date: 20080131
  Receipt Date: 20080125
  Transmission Date: 20080703
  Serious: Yes (Hospitalization)
  Sender: FDA-Public Use
  Company Number: FR-GENENTECH-254868

PATIENT
  Sex: Male

DRUGS (1)
  1. RAPTIVA [Suspect]
     Indication: PSORIASIS
     Dosage: 60 MG, 1/WEEK
     Route: 058
     Dates: start: 20070809, end: 20071026

REACTIONS (1)
  - HAIR FOLLICLE TUMOUR BENIGN [None]
